FAERS Safety Report 6203091-0 (Version None)
Quarter: 2009Q2

REPORT INFORMATION
  Report Type: 
  Country: None (occurrence: None)
  Receive Date: 20090521
  Receipt Date: 20090521
  Transmission Date: 20091009
  Serious: Yes (Hospitalization, Other)
  Sender: FDA-Public Use
  Company Number: None

PATIENT
  Age: 57 Year
  Sex: Female
  Weight: 45 kg

DRUGS (1)
  1. HELIDAC [Suspect]
     Indication: ULCER
     Dosage: 525MG/250MG/500MG QID PO
     Route: 048
     Dates: start: 20090510, end: 20090520

REACTIONS (1)
  - GRAND MAL CONVULSION [None]
